FAERS Safety Report 20931907 (Version 1)
Quarter: 2022Q2

REPORT INFORMATION
  Report Type: Spontaneous
  Country: US (occurrence: US)
  Receive Date: 20220608
  Receipt Date: 20220608
  Transmission Date: 20220720
  Serious: Yes (Life-Threatening, Other)
  Sender: FDA-Public Use
  Company Number: US-drreddys-LIT/USA/22/0150822

PATIENT
  Age: 66 Year
  Sex: Male

DRUGS (9)
  1. MINOCYCLINE HYDROCHLORIDE [Suspect]
     Active Substance: MINOCYCLINE HYDROCHLORIDE
     Indication: Pemphigoid
  2. DAPSONE [Suspect]
     Active Substance: DAPSONE
     Indication: Pemphigoid
  3. DOXYCYCLINE [Suspect]
     Active Substance: DOXYCYCLINE
     Indication: Pemphigoid
  4. METHOTREXATE [Suspect]
     Active Substance: METHOTREXATE
     Indication: Pemphigoid
  5. MYCOPHENOLATE MOFETIL [Suspect]
     Active Substance: MYCOPHENOLATE MOFETIL
     Indication: Pemphigoid
  6. NICOTINAMIDE [Suspect]
     Active Substance: NIACINAMIDE
     Indication: Pemphigoid
  7. PREDNISONE [Suspect]
     Active Substance: PREDNISONE
     Indication: Pemphigoid
  8. RITUXIMAB [Suspect]
     Active Substance: RITUXIMAB
     Indication: Pemphigoid
  9. SULFASALAZINE [Suspect]
     Active Substance: SULFASALAZINE
     Indication: Pemphigoid

REACTIONS (2)
  - Drug ineffective [Unknown]
  - Condition aggravated [Unknown]
